FAERS Safety Report 24172794 (Version 1)
Quarter: 2024Q3

REPORT INFORMATION
  Report Type: Spontaneous
  Country: CA (occurrence: CA)
  Receive Date: 20240805
  Receipt Date: 20240805
  Transmission Date: 20241017
  Serious: Yes (Hospitalization, Other)
  Sender: AUROBINDO
  Company Number: CA-AUROBINDO-AUR-APL-2024-038500

PATIENT
  Age: 41 Year
  Sex: Male

DRUGS (2)
  1. AMOXICILLIN [Suspect]
     Active Substance: AMOXICILLIN
     Indication: Pharyngitis streptococcal
     Dosage: UNK
     Route: 065
  2. REMICADE [Suspect]
     Active Substance: INFLIXIMAB
     Indication: Ankylosing spondylitis
     Dosage: 500 MILLIGRAM, EVERY 12 WEEKS
     Route: 041

REACTIONS (4)
  - Unresponsive to stimuli [Recovered/Resolved]
  - Meningitis [Recovered/Resolved]
  - Mouth ulceration [Recovered/Resolved]
  - Pharyngitis streptococcal [Recovered/Resolved]
